FAERS Safety Report 4655626-7 (Version None)
Quarter: 2005Q2

REPORT INFORMATION
  Report Type: 
  Country: None (occurrence: None)
  Receive Date: 20050505
  Receipt Date: 20050415
  Transmission Date: 20051028
  Serious: Yes (Hospitalization)
  Sender: FDA-Public Use
  Company Number: US_0504115331

PATIENT
  Age: 1 Year
  Sex: Male
  Weight: 3110 kg

DRUGS (4)
  1. HUMALOG [Suspect]
     Dates: start: 20040413, end: 20040608
  2. HUMULIN N [Suspect]
     Dates: start: 20040413, end: 20040608
  3. GLYBURIDE [Concomitant]
  4. PRENATAL VITAMINS [Concomitant]

REACTIONS (6)
  - DRUG EXPOSURE DURING PREGNANCY [None]
  - HYPERBILIRUBINAEMIA NEONATAL [None]
  - HYPOGLYCAEMIA NEONATAL [None]
  - JAUNDICE NEONATAL [None]
  - LARGE FOR DATES BABY [None]
  - PREMATURE BABY [None]
